FAERS Safety Report 7723003-8 (Version None)
Quarter: 2011Q3

REPORT INFORMATION
  Report Type: 
  Country: None (occurrence: None)
  Receive Date: 20110826
  Receipt Date: 20110815
  Transmission Date: 20111222
  Serious: Yes (Other)
  Sender: FDA-Public Use
  Company Number: 1000022890

PATIENT
  Sex: Female

DRUGS (1)
  1. VIIBRYD [Suspect]
     Dates: start: 20110101

REACTIONS (1)
  - SEROTONIN SYNDROME [None]
